FAERS Safety Report 17207864 (Version 1)
Quarter: 2019Q4

REPORT INFORMATION
  Report Type: Report from Study
  Country: IE (occurrence: IE)
  Receive Date: 20191227
  Receipt Date: 20191227
  Transmission Date: 20200122
  Serious: Yes (Other)
  Sender: FDA-Public Use
  Company Number: IE-JNJFOC-20191235154

PATIENT
  Age: 22 Year
  Sex: Male

DRUGS (6)
  1. STELARA [Suspect]
     Active Substance: USTEKINUMAB
     Indication: CROHN^S DISEASE
     Route: 058
     Dates: start: 20190906
  2. GALFER [Concomitant]
     Active Substance: IRON
  3. MEZAVANT [Concomitant]
     Active Substance: MESALAMINE
  4. COLGOUT [Concomitant]
     Active Substance: COLCHICINE
     Dosage: 500 MCG
  5. RAMIPRIL. [Concomitant]
     Active Substance: RAMIPRIL
  6. TETRALYSAL                         /00001701/ [Concomitant]
     Active Substance: LYMECYCLINE

REACTIONS (1)
  - Mumps [Not Recovered/Not Resolved]

NARRATIVE: CASE EVENT DATE: 20191219
